FAERS Safety Report 21372548 (Version 1)
Quarter: 2022Q3

REPORT INFORMATION
  Report Type: Spontaneous
  Country: US (occurrence: US)
  Receive Date: 20220924
  Receipt Date: 20220924
  Transmission Date: 20221027
  Serious: Yes (Hospitalization, Other)
  Sender: FDA-Public Use
  Company Number: US-MLMSERVICE-2022060135873381

PATIENT
  Age: 52 Year
  Sex: Female

DRUGS (2)
  1. VANCOMYCIN [Suspect]
     Active Substance: VANCOMYCIN
     Indication: Tonsil cancer
     Dosage: CUMULATIVE DOSE: 2500 MG/2 DOSES OF 1250 MG
  2. PIPERACILLIN AND TAZOBACTAM [Suspect]
     Active Substance: PIPERACILLIN SODIUM\TAZOBACTAM SODIUM
     Indication: Antibiotic therapy

REACTIONS (6)
  - Product administration error [Unknown]
  - Renal tubular necrosis [Recovering/Resolving]
  - Acute kidney injury [Recovering/Resolving]
  - Renal failure [Recovering/Resolving]
  - Nephropathy toxic [Recovering/Resolving]
  - Off label use [Unknown]
